FAERS Safety Report 5280093-2 (Version None)
Quarter: 2007Q1

REPORT INFORMATION
  Report Type: 
  Country: None (occurrence: None)
  Receive Date: 20070329
  Receipt Date: 20070319
  Transmission Date: 20070707
  Serious: Yes (Hospitalization)
  Sender: FDA-Public Use
  Company Number: PHRM2007FR01071

PATIENT
  Age: 86 Year
  Sex: Female

DRUGS (3)
  1. VOLTAREN [Suspect]
     Dosage: 4 DF/DAY
     Route: 048
     Dates: start: 20061215, end: 20070213
  2. PREVISCAN [Interacting]
     Dosage: 1/2 AND 1/4 TAB - 1 DAY/2
     Route: 048
     Dates: end: 20070213
  3. PREVISCAN [Interacting]
     Dosage: UNK, UNK
     Route: 048
     Dates: start: 20070219

REACTIONS (4)
  - DUODENAL ULCER HAEMORRHAGE [None]
  - EPISTAXIS [None]
  - HAEMATEMESIS [None]
  - RECTAL HAEMORRHAGE [None]
